FAERS Safety Report 19992743 (Version 1)
Quarter: 2021Q4

REPORT INFORMATION
  Report Type: Spontaneous
  Country: US (occurrence: US)
  Receive Date: 20211025
  Receipt Date: 20211025
  Transmission Date: 20220303
  Serious: No
  Sender: FDA-Public Use
  Company Number: US-BAYER-2021A231351

PATIENT
  Age: 34 Year
  Sex: Female

DRUGS (1)
  1. EOVIST [Suspect]
     Active Substance: GADOXETATE DISODIUM
     Indication: Magnetic resonance imaging
     Dosage: UNK, ONCE
     Dates: start: 20211013, end: 20211013

REACTIONS (6)
  - Lethargy [Recovered/Resolved]
  - Insomnia [None]
  - Peripheral swelling [None]
  - Musculoskeletal stiffness [None]
  - Pain [Not Recovered/Not Resolved]
  - Influenza like illness [None]

NARRATIVE: CASE EVENT DATE: 20211013
